FAERS Safety Report 19685808 (Version 1)
Quarter: 2021Q3

REPORT INFORMATION
  Report Type: Spontaneous
  Country: US (occurrence: US)
  Receive Date: 20210811
  Receipt Date: 20210811
  Transmission Date: 20211014
  Serious: Yes (Hospitalization)
  Sender: FDA-Public Use
  Company Number: US-GW PHARMA-202107USGW03600

PATIENT

DRUGS (3)
  1. TRILEPTAL [Concomitant]
     Active Substance: OXCARBAZEPINE
     Indication: PRODUCT USED FOR UNKNOWN INDICATION
     Dosage: UNK
     Route: 065
  2. PHENOBARBITAL. [Concomitant]
     Active Substance: PHENOBARBITAL
     Indication: PRODUCT USED FOR UNKNOWN INDICATION
     Dosage: UNK
     Route: 065
  3. EPIDIOLEX [Suspect]
     Active Substance: CANNABIDIOL
     Indication: LENNOX-GASTAUT SYNDROME
     Dosage: 20/MG/KG/DAY, 680 MILLIGRAM, BID, FIRST SHIPPED 17?DEC?2018
     Route: 048
     Dates: start: 201812

REACTIONS (3)
  - Gastrointestinal haemorrhage [Unknown]
  - Intestinal mass [Unknown]
  - Sepsis [Unknown]

NARRATIVE: CASE EVENT DATE: 20210623
